FAERS Safety Report 15354251 (Version 1)
Quarter: 2018Q3

REPORT INFORMATION
  Report Type: Report from Study
  Country: None (occurrence: US)
  Receive Date: 20180906
  Receipt Date: 20180906
  Transmission Date: 20181010
  Serious: Yes (Other)
  Sender: FDA-Public Use
  Company Number: US-ABBVIE-18K-163-2470989-00

PATIENT
  Sex: Male

DRUGS (1)
  1. HUMIRA [Suspect]
     Active Substance: ADALIMUMAB
     Indication: CROHN^S DISEASE
     Route: 058

REACTIONS (7)
  - Joint injection [Recovering/Resolving]
  - Limb traumatic amputation [Not Recovered/Not Resolved]
  - Mobility decreased [Recovering/Resolving]
  - Abdominal adhesions [Unknown]
  - Pain [Not Recovered/Not Resolved]
  - Mental disorder [Unknown]
  - Crohn^s disease [Not Recovered/Not Resolved]
